FAERS Safety Report 8431666 (Version 8)
Quarter: 2012Q4

REPORT INFORMATION
  Report Type: 
  Country: US (occurrence: US)
  Receive Date: 20120228
  Receipt Date: 20121012
  Transmission Date: 20130627
  Serious: Yes (Hospitalization, Other)
  Sender: FDA-Public Use
  Company Number: US-009507513-1202USA03899

PATIENT

DRUGS (6)
  1. FOSAMAX [Suspect]
     Indication: OSTEOPOROSIS
     Dosage: 70mg weekly
     Route: 048
     Dates: start: 2000, end: 20120111
  2. FOSAMAX [Suspect]
     Dosage: 70 mg, qd
     Dates: start: 20030731
  3. CALCIUM (UNSPECIFIED) [Concomitant]
     Indication: ROUTINE HEALTH MAINTENANCE
     Dosage: UNK
     Route: 048
  4. ONE-A-DAY ESSENTIAL VITAMINS [Concomitant]
     Indication: ROUTINE HEALTH MAINTENANCE
     Dosage: UNK
     Route: 048
  5. CORTICOSTEROIDS (UNSPECIFIED) [Concomitant]
     Indication: PRODUCT USED FOR UNKNOWN INDICATION
     Dosage: UNK
     Dates: start: 1971, end: 2012
  6. HORMONES (UNSPECIFIED) [Concomitant]
     Indication: PRODUCT USED FOR UNKNOWN INDICATION
     Dates: start: 1980, end: 2002

REACTIONS (68)
  - Intramedullary rod insertion [Unknown]
  - Low turnover osteopathy [Unknown]
  - Femur fracture [Unknown]
  - Teeth brittle [Unknown]
  - Blood cholesterol increased [Unknown]
  - Basosquamous carcinoma [Unknown]
  - Somnolence [Recovered/Resolved]
  - Depression [Unknown]
  - Essential hypertension [Unknown]
  - Chronic sinusitis [Not Recovered/Not Resolved]
  - Upper respiratory tract infection [Unknown]
  - Irritable bowel syndrome [Unknown]
  - Pruritus [Unknown]
  - Actinic keratosis [Unknown]
  - Sleep apnoea syndrome [Unknown]
  - Paraesthesia [Unknown]
  - Pharyngitis [Unknown]
  - Muscle strain [Unknown]
  - Otitis media [Unknown]
  - Hypersensitivity [Unknown]
  - Bronchitis [Unknown]
  - Rhinitis allergic [Unknown]
  - Sinus headache [Unknown]
  - Venous insufficiency [Unknown]
  - Pain in extremity [Unknown]
  - Haemorrhoidal haemorrhage [Not Recovered/Not Resolved]
  - Pain in extremity [Unknown]
  - Pain in extremity [Unknown]
  - Anaemia postoperative [Unknown]
  - Eye pain [Unknown]
  - Incision site haemorrhage [Recovered/Resolved]
  - Procedural hypotension [Recovered/Resolved]
  - Pain in extremity [Unknown]
  - Diverticulitis intestinal haemorrhagic [Unknown]
  - Procedural hypertension [Unknown]
  - Haemorrhoids [Not Recovered/Not Resolved]
  - Diverticulum [Unknown]
  - Osteoarthritis [Unknown]
  - Plantar fasciitis [Unknown]
  - Fatigue [Unknown]
  - Arthritis [Unknown]
  - Gastrooesophageal reflux disease [Unknown]
  - Diverticulitis [Unknown]
  - Overdose [Unknown]
  - Urinary tract infection [Unknown]
  - Sinus headache [Unknown]
  - Muscle spasms [Unknown]
  - Patellofemoral pain syndrome [Unknown]
  - Hiatus hernia [Unknown]
  - Anxiety [Unknown]
  - Dermatitis [Unknown]
  - Iron deficiency anaemia [Unknown]
  - Skin papilloma [Unknown]
  - Musculoskeletal chest pain [Unknown]
  - Dizziness postural [Unknown]
  - Back pain [Unknown]
  - Oedema peripheral [Unknown]
  - Skin ulcer [Recovering/Resolving]
  - Venous insufficiency [Unknown]
  - Type V hyperlipidaemia [Unknown]
  - Cellulitis [Unknown]
  - Increased tendency to bruise [Unknown]
  - Constipation [Unknown]
  - Arthralgia [Unknown]
  - Fibroma [Unknown]
  - Contusion [Unknown]
  - Osteonecrosis [Unknown]
  - Fall [Unknown]
